FAERS Safety Report 12210977 (Version 3)
Quarter: 2016Q2

REPORT INFORMATION
  Report Type: Spontaneous
  Country: JP (occurrence: JP)
  Receive Date: 20160325
  Receipt Date: 20160408
  Transmission Date: 20160815
  Serious: Yes (Disabling, Other)
  Sender: FDA-Public Use
  Company Number: JP-REGENERON PHARMACEUTICALS, INC.-2016-14400

PATIENT

DRUGS (5)
  1. EYLEA [Suspect]
     Active Substance: AFLIBERCEPT
     Indication: DIABETIC RETINAL OEDEMA
     Dosage: 2.0 MG, ONCE
     Route: 031
     Dates: start: 20160212, end: 20160212
  2. CARNACULIN                         /00088101/ [Concomitant]
     Indication: DIABETIC RETINOPATHY
     Dosage: DAILY DOSE 3 DF
     Route: 048
     Dates: start: 20150608
  3. DICLOD [Concomitant]
     Active Substance: DICLOFENAC SODIUM
     Dosage: UNK UNK, TID
     Route: 031
  4. DICLOD [Concomitant]
     Active Substance: DICLOFENAC SODIUM
     Indication: DIABETIC RETINAL OEDEMA
     Dosage: UNK UNK, TID
     Route: 031
  5. DICLOD [Concomitant]
     Active Substance: DICLOFENAC SODIUM
     Dosage: UNK UNK, TID
     Route: 031

REACTIONS (3)
  - Visual acuity reduced [Not Recovered/Not Resolved]
  - Macular oedema [Not Recovered/Not Resolved]
  - Retinal aneurysm [Not Recovered/Not Resolved]

NARRATIVE: CASE EVENT DATE: 20160222
